FAERS Safety Report 8410966-0 (Version None)
Quarter: 2012Q2

REPORT INFORMATION
  Report Type: 
  Country: None (occurrence: None)
  Receive Date: 20120605
  Receipt Date: 20120531
  Transmission Date: 20120825
  Serious: Yes (Life-Threatening)
  Sender: FDA-Public Use
  Company Number: CH-SANOFI-AVENTIS-2012SA039112

PATIENT
  Age: 63 Year
  Sex: Male

DRUGS (13)
  1. ENOXAPARIN SODIUM [Suspect]
     Route: 058
     Dates: start: 20110901, end: 20120228
  2. NEXIUM [Suspect]
     Route: 048
  3. LORAZEPAM [Concomitant]
     Dosage: LONG TERM
  4. LYRICA [Concomitant]
     Route: 048
     Dates: start: 20120101
  5. ROCEPHIN [Suspect]
     Indication: BACTERIAL INFECTION
     Route: 042
     Dates: start: 20110901, end: 20120101
  6. CITALOPRAM HYDROBROMIDE [Suspect]
     Route: 048
     Dates: start: 20110901, end: 20120101
  7. PRIMPERAN TAB [Concomitant]
     Route: 048
     Dates: start: 20110901
  8. LANTUS [Concomitant]
     Dates: start: 20110901
  9. ACETAMINOPHEN [Suspect]
     Route: 048
     Dates: start: 20110901, end: 20120101
  10. OXAZEPAM [Concomitant]
     Dosage: LONG TERM
  11. TASIGNA [Suspect]
     Route: 048
     Dates: start: 20101001
  12. CEFUROXIME [Suspect]
     Route: 042
     Dates: start: 20110901
  13. CILASTATIN SODIUM [Suspect]
     Indication: BACTERIAL INFECTION
     Route: 048
     Dates: start: 20110901, end: 20120228

REACTIONS (2)
  - CONDITION AGGRAVATED [None]
  - CHOLESTATIC LIVER INJURY [None]
